FAERS Safety Report 17417777 (Version 1)
Quarter: 2020Q1

REPORT INFORMATION
  Report Type: Spontaneous
  Country: IT (occurrence: IT)
  Receive Date: 20200213
  Receipt Date: 20200213
  Transmission Date: 20200409
  Serious: Yes (Hospitalization)
  Sender: FDA-Public Use
  Company Number: IT-TEVA-2020-IT-1184655

PATIENT
  Age: 53 Year
  Sex: Female

DRUGS (1)
  1. COPAXONE [Suspect]
     Active Substance: GLATIRAMER ACETATE
     Indication: MULTIPLE SCLEROSIS
     Dosage: 120 MG
     Dates: start: 20180131

REACTIONS (6)
  - Dizziness [Recovering/Resolving]
  - Hot flush [Recovering/Resolving]
  - Tachycardia [Recovering/Resolving]
  - Palpitations [Recovering/Resolving]
  - Chest pain [Recovering/Resolving]
  - Vasodilatation [Recovering/Resolving]

NARRATIVE: CASE EVENT DATE: 20190315
